FAERS Safety Report 7512808-4 (Version None)
Quarter: 2011Q2

REPORT INFORMATION
  Report Type: 
  Country: None (occurrence: None)
  Receive Date: 20110531
  Receipt Date: 20110524
  Transmission Date: 20111010
  Serious: Yes (Disabling, Other)
  Sender: FDA-Public Use
  Company Number: B0723012A

PATIENT
  Age: 75 Year
  Sex: Male

DRUGS (2)
  1. ANTI HYPERTENSIVE [Concomitant]
  2. AVODART [Suspect]
     Indication: PROSTATIC ADENOMA
     Dosage: .5MG PER DAY
     Route: 048
     Dates: start: 20110422, end: 20110509

REACTIONS (1)
  - DYSURIA [None]
